FAERS Safety Report 9119527 (Version 1)
Quarter: 2013Q1

REPORT INFORMATION
  Report Type: Spontaneous
  Country: IE (occurrence: IE)
  Receive Date: 20130226
  Receipt Date: 20130226
  Transmission Date: 20140127
  Serious: Yes (Hospitalization, Other)
  Sender: FDA-Public Use
  Company Number: IE-BAXTER-2012BAX026630

PATIENT
  Age: 51 Year
  Sex: Male
  Weight: 93.4 kg

DRUGS (2)
  1. KIOVIG 100 MG/ML SOLUTION FOR INFUSION INTRAVENOUS USE VIAL (GLASS) 30 [Suspect]
     Indication: CHRONIC INFLAMMATORY DEMYELINATING POLYRADICULONEUROPATHY
     Dosage: 37.5 GRAMS/DAY
     Route: 042
     Dates: start: 2009
  2. KIOVIG 100 MG/ML SOLUTION FOR INFUSION INTRAVENOUS USE VIAL (GLASS) 30 [Suspect]
     Indication: OFF LABEL USE
     Route: 042
     Dates: start: 20121008, end: 20121012

REACTIONS (2)
  - Myocardial infarction [Recovered/Resolved with Sequelae]
  - Off label use [None]
